FAERS Safety Report 25473041 (Version 3)
Quarter: 2025Q3

REPORT INFORMATION
  Report Type: Report from Study
  Country: JP (occurrence: JP)
  Receive Date: 20250624
  Receipt Date: 20250826
  Transmission Date: 20251020
  Serious: Yes (Death, Hospitalization)
  Sender: GILEAD
  Company Number: JP-CMIC-GS-JP-569-6813-00004-00002

PATIENT
  Age: 30 Year
  Sex: Female
  Weight: 43 kg

DRUGS (13)
  1. SACITUZUMAB GOVITECAN-HZIY [Suspect]
     Active Substance: SACITUZUMAB GOVITECAN-HZIY
     Indication: Triple negative breast cancer
     Route: 041
     Dates: start: 20250303, end: 20250421
  2. ALOXI [Concomitant]
     Active Substance: PALONOSETRON HYDROCHLORIDE
     Indication: Prophylaxis
     Route: 042
     Dates: start: 20250303, end: 20250421
  3. DEXAMETHASONE SODIUM PHOSPHATE [Concomitant]
     Active Substance: DEXAMETHASONE SODIUM PHOSPHATE
     Indication: Prophylaxis
     Route: 042
     Dates: start: 20250303, end: 20250421
  4. POLARAMINE [Concomitant]
     Active Substance: DEXCHLORPHENIRAMINE MALEATE
     Indication: Prophylaxis
     Route: 042
     Dates: start: 20250303, end: 20250421
  5. FAMOTIDINE [Concomitant]
     Active Substance: FAMOTIDINE
     Indication: Prophylaxis
     Route: 042
     Dates: start: 20250303, end: 20250421
  6. HYDROMORPHONE HYDROCHLORIDE [Concomitant]
     Active Substance: HYDROMORPHONE HYDROCHLORIDE
     Indication: Analgesic therapy
     Route: 048
     Dates: start: 20250324
  7. HYDROMORPHONE HYDROCHLORIDE [Concomitant]
     Active Substance: HYDROMORPHONE HYDROCHLORIDE
     Indication: Analgesic therapy
     Route: 048
  8. LOXOPROFEN SODIUM DIHYDRATE [Concomitant]
     Active Substance: LOXOPROFEN SODIUM DIHYDRATE
     Indication: Analgesic therapy
     Route: 048
  9. CALONAL [Concomitant]
     Active Substance: ACETAMINOPHEN
     Indication: Analgesic therapy
     Route: 048
  10. LOXOPROFEN SODIUM [Concomitant]
     Active Substance: LOXOPROFEN SODIUM
     Indication: Analgesic therapy
     Route: 003
  11. DEXTROMETHORPHAN HYDROBROMIDE [Concomitant]
     Active Substance: DEXTROMETHORPHAN HYDROBROMIDE
     Indication: Disease complication
     Route: 048
     Dates: start: 20250317, end: 20250323
  12. BETAMETHASONE SODIUM PHOSPHATE [Concomitant]
     Active Substance: BETAMETHASONE SODIUM PHOSPHATE
     Indication: Disease complication
     Route: 050
  13. CALCIUM CARBONATE\CHOLECALCIFEROL\MAGNESIUM CARBONATE [Concomitant]
     Active Substance: CALCIUM CARBONATE\CHOLECALCIFEROL\MAGNESIUM CARBONATE
     Indication: Prophylaxis
     Route: 048
     Dates: start: 20250324, end: 20250421

REACTIONS (5)
  - Triple negative breast cancer [Fatal]
  - Metastases to meninges [Fatal]
  - Headache [Recovering/Resolving]
  - Sputum retention [Recovering/Resolving]
  - Off label use [Recovered/Resolved]

NARRATIVE: CASE EVENT DATE: 20250303
